FAERS Safety Report 5655848-2 (Version None)
Quarter: 2008Q1

REPORT INFORMATION
  Report Type: 
  Country: None (occurrence: None)
  Receive Date: 20080307
  Receipt Date: 20080227
  Transmission Date: 20080703
  Serious: Yes (Death, Hospitalization, Other)
  Sender: FDA-Public Use
  Company Number: IE-PFIZER INC-2008013168

PATIENT
  Age: 54 Year
  Sex: Male

DRUGS (1)
  1. LIPITOR [Suspect]
     Indication: BLOOD CHOLESTEROL

REACTIONS (8)
  - DEATH [None]
  - DIABETES MELLITUS [None]
  - ENTEROCOCCAL INFECTION [None]
  - MULTI-ORGAN FAILURE [None]
  - MYOCARDIAL ISCHAEMIA [None]
  - OSTEITIS [None]
  - PNEUMONIA [None]
  - RHABDOMYOLYSIS [None]
